FAERS Safety Report 9323760 (Version 1)
Quarter: 2013Q2

REPORT INFORMATION
  Report Type: Spontaneous
  Country: FI (occurrence: FI)
  Receive Date: 20130603
  Receipt Date: 20130603
  Transmission Date: 20140414
  Serious: Yes (Other)
  Sender: FDA-Public Use
  Company Number: FI-JNJFOC-20130515625

PATIENT
  Age: 8 Decade
  Sex: Male

DRUGS (1)
  1. STELARA [Suspect]
     Indication: PRODUCT USED FOR UNKNOWN INDICATION
     Dosage: USED THE PRODUCT FOR 2-3 YEARS
     Route: 058

REACTIONS (1)
  - Lip and/or oral cavity cancer [Unknown]
